FAERS Safety Report 10467714 (Version 2)
Quarter: 2014Q4

REPORT INFORMATION
  Report Type: Spontaneous
  Country: US (occurrence: US)
  Receive Date: 20140922
  Receipt Date: 20141226
  Transmission Date: 20150528
  Serious: Yes (Hospitalization)
  Sender: FDA-Public Use
  Company Number: US-BAYER-2014-140816

PATIENT
  Age: 31 Year
  Sex: Female

DRUGS (4)
  1. PERCOCET [Concomitant]
     Active Substance: ACETAMINOPHEN\OXYCODONE HYDROCHLORIDE
  2. IMITREX [Concomitant]
     Active Substance: SUMATRIPTAN\SUMATRIPTAN SUCCINATE
     Dosage: 10 MG, PRN
     Dates: start: 20120810
  3. FIORICET [Concomitant]
     Active Substance: ACETAMINOPHEN\BUTALBITAL\CAFFEINE
     Indication: MIGRAINE
     Dosage: UNK
     Dates: start: 200502, end: 201404
  4. MIRENA [Suspect]
     Active Substance: LEVONORGESTREL
     Indication: CONTRACEPTION
     Dosage: 20 MCG/24HR, CONT
     Route: 015
     Dates: start: 20100603, end: 20120823

REACTIONS (13)
  - Abdominal pain [None]
  - Anxiety [None]
  - Depression [None]
  - Genital haemorrhage [None]
  - Emotional distress [None]
  - Uterine perforation [None]
  - Injury [None]
  - Fear [None]
  - Internal injury [None]
  - Pelvic pain [None]
  - Depressed mood [None]
  - General physical health deterioration [None]
  - Medical device discomfort [None]

NARRATIVE: CASE EVENT DATE: 2012
